FAERS Safety Report 19005594 (Version 2)
Quarter: 2021Q1

REPORT INFORMATION
  Report Type: Report from Study
  Country: CN (occurrence: CN)
  Receive Date: 20210313
  Receipt Date: 20210324
  Transmission Date: 20210420
  Serious: Yes (Hospitalization, Other)
  Sender: FDA-Public Use
  Company Number: CN-UCBSA-2021010763

PATIENT
  Age: 64 Year
  Sex: Male
  Weight: 60 kg

DRUGS (5)
  1. ROTIGOTINE [Suspect]
     Active Substance: ROTIGOTINE
     Indication: PARKINSON^S DISEASE
     Dosage: 4 MILLIGRAM, ONCE DAILY (QD)
     Route: 062
     Dates: start: 202011, end: 202101
  2. ROPINIROLE. [Concomitant]
     Active Substance: ROPINIROLE
     Indication: PARKINSON^S DISEASE
     Dosage: 2 MILLIGRAM, 2X/DAY (BID)
  3. MADOPAR [Concomitant]
     Active Substance: BENSERAZIDE HYDROCHLORIDE\LEVODOPA
     Indication: PARKINSON^S DISEASE
     Dosage: MADOPAR 4 TIMES/DAY, 1/4 EACH TIME
  4. RASAGILIN [Concomitant]
     Active Substance: RASAGILINE MESYLATE
     Indication: PARKINSON^S DISEASE
     Dosage: 1 DOSAGE FORM, ONCE DAILY (QD)
  5. STALEVO [Concomitant]
     Active Substance: CARBIDOPA\ENTACAPONE\LEVODOPA
     Indication: PARKINSON^S DISEASE
     Dosage: 1 DOSAGE FORM, 4X/DAY (QID)

REACTIONS (3)
  - Amnesia [Recovered/Resolved]
  - Hallucination [Recovered/Resolved]
  - Parkinson^s disease [Recovering/Resolving]

NARRATIVE: CASE EVENT DATE: 202101
